FAERS Safety Report 20231598 (Version 1)
Quarter: 2021Q4

REPORT INFORMATION
  Report Type: Other
  Country: DE (occurrence: DE)
  Receive Date: 20211227
  Receipt Date: 20211227
  Transmission Date: 20220303
  Serious: Yes (Hospitalization, Other)
  Sender: FDA-Public Use
  Company Number: DE-ADRED-05259-02

PATIENT
  Age: 51 Year
  Sex: Male
  Weight: 112 kg

DRUGS (18)
  1. SIMVASTATIN [Suspect]
     Active Substance: SIMVASTATIN
     Indication: Product used for unknown indication
     Dosage: 40 MG, QD
     Route: 048
  2. MIRTAZAPINE [Suspect]
     Active Substance: MIRTAZAPINE
     Indication: Product used for unknown indication
     Dosage: UNK UNK, QD (15 MG, 0-0-0-0.5)
     Route: 048
  3. MELATONIN [Suspect]
     Active Substance: MELATONIN
     Indication: Product used for unknown indication
     Dosage: SELF-MEDICATION
     Route: 065
  4. HYDROCHLOROTHIAZIDE\RAMIPRIL [Suspect]
     Active Substance: HYDROCHLOROTHIAZIDE\RAMIPRIL
     Indication: Product used for unknown indication
     Dosage: UNK, QD (25/5 MG, 1-0-0-0)
     Route: 048
  5. HERBALS [Suspect]
     Active Substance: HERBALS
     Indication: Product used for unknown indication
     Dosage: SELFMEDICATION
     Route: 065
  6. PROMETHAZINE [Suspect]
     Active Substance: PROMETHAZINE HYDROCHLORIDE
     Indication: Product used for unknown indication
     Dosage: 20 MG/ML, PRN
     Route: 048
  7. ENOXAPARIN [Concomitant]
     Active Substance: ENOXAPARIN
     Indication: Product used for unknown indication
     Dosage: UNK, QD (40 MG/0.4ML, 0-0-1-0)
     Route: 058
  8. METOPROLOL [Concomitant]
     Active Substance: METOPROLOL
     Indication: Product used for unknown indication
     Dosage: 95 MILLIGRAM, BID (1-0-1-0)
     Route: 048
  9. ASPIRIN [Concomitant]
     Active Substance: ASPIRIN
     Indication: Product used for unknown indication
     Dosage: 100 MILLIGRAM, QD (0-1-0-0)
     Route: 048
  10. IBUPROFEN [Concomitant]
     Active Substance: IBUPROFEN
     Indication: Product used for unknown indication
     Dosage: 800 MG, PRN
     Route: 048
  11. LORAZEPAM [Concomitant]
     Active Substance: LORAZEPAM
     Indication: Product used for unknown indication
     Dosage: 1 MG, TID (1-1-1-0)
     Route: 060
  12. LERCANIDIPINE [Concomitant]
     Active Substance: LERCANIDIPINE
     Indication: Product used for unknown indication
     Dosage: 10 MG, BID (1-0-1-0)
     Route: 048
  13. VICTOZA [Concomitant]
     Active Substance: LIRAGLUTIDE
     Indication: Product used for unknown indication
     Dosage: UNK, QD (6 MG/ML, 0-0-0.6-0) FOR INJECTION IN A PRE-FILLED PEN
     Route: 058
  14. RAMIPRIL [Concomitant]
     Active Substance: RAMIPRIL
     Indication: Product used for unknown indication
     Dosage: 5 MG, BID (1-0-1-0)
     Route: 048
  15. Mariendistel [Concomitant]
     Indication: Product used for unknown indication
     Dosage: SELF-MEDICATION
     Route: 065
  16. METFORMIN [Concomitant]
     Active Substance: METFORMIN HYDROCHLORIDE
     Indication: Product used for unknown indication
     Dosage: 1000 MG, BID (1-0-1-0)
     Route: 048
  17. NITROGLYCERIN [Concomitant]
     Active Substance: NITROGLYCERIN
     Indication: Product used for unknown indication
     Dosage: 0.4 MG/STROKE, ON DEMAND
     Route: 060
  18. DIHYDRALAZINE [Concomitant]
     Active Substance: DIHYDRALAZINE
     Indication: Product used for unknown indication
     Dosage: 25 MG, BID (1-0-1-0)
     Route: 048

REACTIONS (7)
  - Cholelithiasis [Unknown]
  - Contraindicated product administered [Unknown]
  - Labelled drug-drug interaction medication error [Unknown]
  - Abdominal pain upper [Unknown]
  - Gallbladder enlargement [Unknown]
  - Product monitoring error [Unknown]
  - Hepatic enzyme increased [Unknown]
